FAERS Safety Report 7343426-9 (Version None)
Quarter: 2011Q1

REPORT INFORMATION
  Report Type: 
  Country: None (occurrence: None)
  Receive Date: 20110310
  Receipt Date: 20100831
  Transmission Date: 20110831
  Serious: Yes (Other)
  Sender: FDA-Public Use
  Company Number: US-BAYER-201028672NA

PATIENT
  Sex: Female
  Weight: 72.562 kg

DRUGS (10)
  1. YASMIN [Suspect]
     Indication: ORAL CONTRACEPTION
     Dosage: UNK UNK, UNK
     Route: 048
     Dates: start: 20010101, end: 20080301
  2. OCELLA [Suspect]
     Indication: ORAL CONTRACEPTION
     Dosage: UNK
     Dates: start: 20090301, end: 20091201
  3. ZOLOFT [Concomitant]
     Indication: ANXIETY
     Dosage: 50 MG, UNK
     Dates: start: 20000501, end: 20100101
  4. ANAPROX [Concomitant]
     Dosage: UNK
     Dates: start: 20090617
  5. DIFLUCAN [Concomitant]
     Dosage: UNK
     Dates: start: 20000101, end: 20100101
  6. REGLAN [Concomitant]
     Dosage: UNK
     Dates: start: 20090617
  7. XANAX [Concomitant]
     Indication: ANXIETY
     Dosage: UNK
     Dates: start: 20000501, end: 20100101
  8. NAPROSYN [Concomitant]
     Dosage: UNK
     Dates: start: 20000101, end: 20100101
  9. YAZ [Suspect]
     Indication: ORAL CONTRACEPTION
     Dosage: UNK
     Dates: start: 20080301, end: 20090301
  10. ACIPHEX [Concomitant]
     Dosage: UNK
     Dates: start: 20070102

REACTIONS (12)
  - PALPITATIONS [None]
  - CHOLECYSTITIS CHRONIC [None]
  - NAUSEA [None]
  - MIGRAINE [None]
  - THROAT IRRITATION [None]
  - DYSPEPSIA [None]
  - EPIGASTRIC DISCOMFORT [None]
  - CHOLELITHIASIS [None]
  - CAROTID ARTERY STENOSIS [None]
  - ARTERIOSCLEROSIS [None]
  - MUSCULOSKELETAL CHEST PAIN [None]
  - CHEST PAIN [None]
